FAERS Safety Report 19242312 (Version 1)
Quarter: 2021Q2

REPORT INFORMATION
  Report Type: Spontaneous
  Country: GB (occurrence: GB)
  Receive Date: 20210511
  Receipt Date: 20210511
  Transmission Date: 20210717
  Serious: Yes (Other)
  Sender: FDA-Public Use
  Company Number: GB-BEH-2021131530

PATIENT
  Age: 40 Year
  Sex: Female
  Weight: 93 kg

DRUGS (1)
  1. ANTI?D IMMUNOGLOBULIN (INN) [Suspect]
     Active Substance: HUMAN RHO(D) IMMUNE GLOBULIN
     Indication: PRODUCT USED FOR UNKNOWN INDICATION
     Route: 065

REACTIONS (5)
  - Blister [Not Recovered/Not Resolved]
  - Herpes zoster [Recovering/Resolving]
  - Injection site pain [Unknown]
  - Injection site rash [Recovering/Resolving]
  - Pain [Not Recovered/Not Resolved]

NARRATIVE: CASE EVENT DATE: 20210413
